FAERS Safety Report 6287710-9 (Version None)
Quarter: 2009Q3

REPORT INFORMATION
  Report Type: 
  Country: None (occurrence: None)
  Receive Date: 20090727
  Receipt Date: 20090727
  Transmission Date: 20100115
  Serious: Yes (Other)
  Sender: FDA-Public Use
  Company Number: None

PATIENT
  Age: 45 Year
  Sex: Male
  Weight: 81.1939 kg

DRUGS (4)
  1. NALTREXONE HYDROCHLORIDE [Suspect]
     Indication: ALCOHOLISM
     Dosage: 50 MG, DAILY, PO
     Route: 048
     Dates: start: 20090310, end: 20090723
  2. DOXEPIN HCL [Concomitant]
  3. CELEXA [Concomitant]
  4. PROTONIX [Concomitant]

REACTIONS (5)
  - CONJUNCTIVAL HAEMORRHAGE [None]
  - CONSTIPATION [None]
  - DRY MOUTH [None]
  - HAEMORRHOIDS [None]
  - WEIGHT INCREASED [None]
